FAERS Safety Report 9774725 (Version 1)
Quarter: 2013Q4

REPORT INFORMATION
  Report Type: Spontaneous
  Country: US (occurrence: None)
  Receive Date: 20131219
  Receipt Date: 20131219
  Transmission Date: 20140711
  Serious: Yes (Hospitalization)
  Sender: FDA-Public Use
  Company Number: None

PATIENT
  Age: 69 Year
  Sex: Female

DRUGS (3)
  1. ULTRAVIST [Suspect]
     Indication: COMPUTERISED TOMOGRAM
     Dosage: ONE TIME
     Route: 042
     Dates: start: 20131210, end: 20131210
  2. BENZODIAZEPINE [Concomitant]
  3. MECLIZINE [Concomitant]

REACTIONS (3)
  - Contrast media allergy [None]
  - Swollen tongue [None]
  - Similar reaction on previous exposure to drug [None]
